FAERS Safety Report 8027716-2 (Version None)
Quarter: 2011Q4

REPORT INFORMATION
  Report Type: 
  Country: None (occurrence: None)
  Receive Date: 20111130
  Receipt Date: 20110705
  Transmission Date: 20120403
  Serious: Yes (Hospitalization, Other)
  Sender: FDA-Public Use
  Company Number: US201002004004

PATIENT
  Age: 56 Year
  Sex: Female
  Weight: 103.4 kg

DRUGS (9)
  1. GLUCOPHAGE [Concomitant]
  2. METFORMIN HCL [Concomitant]
  3. EXENATIDE , DISPOSABLE DEVICE (EXENATIDE PEN PEN, DISPOSABLE [Concomitant]
  4. LISINOPRIL [Concomitant]
  5. BYETTA [Suspect]
     Dates: start: 20070112, end: 20081217
  6. NSAID'S [Concomitant]
  7. AVANDARYL (GLIMEPIRIDE, ROSIGLITAZONE MALEATE) [Concomitant]
  8. ALEVE [Concomitant]
  9. ZOLOFT [Concomitant]

REACTIONS (1)
  - INFECTION [None]
